FAERS Safety Report 4352316-5 (Version None)
Quarter: 2004Q2

REPORT INFORMATION
  Report Type: 
  Country: None (occurrence: None)
  Receive Date: 20040430
  Receipt Date: 20031103
  Transmission Date: 20050107
  Serious: No
  Sender: FDA-Public Use
  Company Number: 22473 (0)

PATIENT
  Age: 57 Year
  Sex: Male

DRUGS (4)
  1. ALDARA [Suspect]
     Indication: ACTINIC KERATOSIS
     Dosage: (0.33 SACHET, 5 IN 1 WEEK(S)), TOPICAL
     Route: 061
     Dates: start: 20030820
  2. UNSPECIFIED MOISTURIZER [Suspect]
     Indication: SINUS DISORDER
  3. CHLORPHENIRAMINE MALEATE [Suspect]
     Indication: HYPERSENSITIVITY
  4. METOPROLOL [Suspect]
     Indication: HYPERTENSION

REACTIONS (2)
  - APPLICATION SITE IRRITATION [None]
  - EPISTAXIS [None]
